FAERS Safety Report 19704274 (Version 1)
Quarter: 2021Q3

REPORT INFORMATION
  Report Type: Spontaneous
  Country: US (occurrence: US)
  Receive Date: 20210815
  Receipt Date: 20210815
  Transmission Date: 20211014
  Serious: Yes (Other)
  Sender: FDA-Public Use
  Company Number: None

PATIENT
  Age: 62 Year
  Sex: Female
  Weight: 84.6 kg

DRUGS (7)
  1. LYRICA [Concomitant]
     Active Substance: PREGABALIN
  2. TYLENOL [Concomitant]
     Active Substance: ACETAMINOPHEN
  3. ALBUTEROL. [Concomitant]
     Active Substance: ALBUTEROL
  4. NOVOLOG [Concomitant]
     Active Substance: INSULIN ASPART
  5. VOLTAREN [Concomitant]
     Active Substance: DICLOFENAC SODIUM
  6. WIXELA INHUB [Suspect]
     Active Substance: FLUTICASONE PROPIONATE\SALMETEROL XINAFOATE
     Indication: ASTHMA
     Dosage: ?          QUANTITY:1 INHALATION(S);?
     Route: 055
     Dates: start: 20210701, end: 20210701
  7. TRESIBA [Concomitant]
     Active Substance: INSULIN DEGLUDEC

REACTIONS (9)
  - Confusional state [None]
  - Heart rate increased [None]
  - Product quality issue [None]
  - Feeling jittery [None]
  - Drug delivery system issue [None]
  - Diarrhoea [None]
  - Nervousness [None]
  - Product delivery mechanism issue [None]
  - Tremor [None]

NARRATIVE: CASE EVENT DATE: 20210701
